FAERS Safety Report 25035010 (Version 1)
Quarter: 2025Q1

REPORT INFORMATION
  Report Type: Spontaneous
  Country: EG (occurrence: EG)
  Receive Date: 20250304
  Receipt Date: 20250304
  Transmission Date: 20250409
  Serious: Yes (Hospitalization, Other)
  Sender: Haleon PLC
  Company Number: EG-002147023-NVSC2025EG015391

PATIENT
  Age: 39 Year
  Sex: Male

DRUGS (4)
  1. CATAFLAM [Suspect]
     Active Substance: DICLOFENAC POTASSIUM
     Indication: Product used for unknown indication
     Route: 065
  2. KETOPROFEN [Suspect]
     Active Substance: KETOPROFEN
     Indication: Product used for unknown indication
     Route: 065
  3. TRAMADOL [Suspect]
     Active Substance: TRAMADOL
     Indication: Product used for unknown indication
     Route: 065
  4. AMLODIPINE BESYLATE [Concomitant]
     Active Substance: AMLODIPINE BESYLATE
     Indication: Product used for unknown indication

REACTIONS (4)
  - Acute kidney injury [Not Recovered/Not Resolved]
  - Blood creatinine abnormal [Not Recovered/Not Resolved]
  - Amyloidosis [Not Recovered/Not Resolved]
  - Oedema peripheral [Not Recovered/Not Resolved]

NARRATIVE: CASE EVENT DATE: 20241130
